FAERS Safety Report 25705701 (Version 1)
Quarter: 2025Q3

REPORT INFORMATION
  Report Type: Spontaneous
  Country: US (occurrence: None)
  Receive Date: 20250819
  Receipt Date: 20250819
  Transmission Date: 20251021
  Serious: No
  Sender: FDA-CTU
  Company Number: None

PATIENT
  Age: 45 Year
  Sex: Female
  Weight: 65.25 kg

DRUGS (4)
  1. ARIPIPRAZOLE [Suspect]
     Active Substance: ARIPIPRAZOLE
     Indication: Depression
     Dosage: 1 TABLET DAILY ORAL?
     Route: 048
     Dates: start: 20240616, end: 20250801
  2. 20 mg Lexapro (generic) [Concomitant]
  3. 150 mg Wellburtin (generic) [Concomitant]
  4. 100 mg Spironalact [Concomitant]

REACTIONS (2)
  - Obsessive-compulsive disorder [None]
  - Gambling [None]

NARRATIVE: CASE EVENT DATE: 20240801
